FAERS Safety Report 21453734 (Version 1)
Quarter: 2022Q4

REPORT INFORMATION
  Report Type: Spontaneous
  Country: US (occurrence: US)
  Receive Date: 20221013
  Receipt Date: 20221013
  Transmission Date: 20230112
  Serious: Yes (Other)
  Sender: FDA-Public Use
  Company Number: US-BRISTOL-MYERS SQUIBB COMPANY-2022-117029

PATIENT
  Age: 68 Year
  Sex: Female
  Weight: 55.33 kg

DRUGS (1)
  1. REVLIMID [Suspect]
     Active Substance: LENALIDOMIDE
     Indication: Plasma cell myeloma
     Dosage: ORAL - 14 ON/7OFF EVERY OTHER DAY
     Route: 065

REACTIONS (3)
  - Dizziness [Unknown]
  - Syncope [Recovered/Resolved]
  - Off label use [Unknown]
